FAERS Safety Report 6057852-1 (Version None)
Quarter: 2009Q1

REPORT INFORMATION
  Report Type: 
  Country: None (occurrence: None)
  Receive Date: 20090129
  Receipt Date: 20090126
  Transmission Date: 20090719
  Serious: Yes (Other)
  Sender: FDA-Public Use
  Company Number: US-GENENTECH-274631

PATIENT
  Sex: Female
  Weight: 69.841 kg

DRUGS (3)
  1. HERCEPTIN [Suspect]
     Indication: BREAST CANCER
     Dosage: 290 MG, Q3W
     Route: 042
     Dates: start: 20070801
  2. HERCEPTIN [Suspect]
     Dosage: UNK
     Route: 042
     Dates: end: 20080701
  3. TAXOL [Suspect]
     Indication: BREAST CANCER
     Dosage: UNK
     Route: 042

REACTIONS (2)
  - BREAST CANCER RECURRENT [None]
  - COLON CANCER [None]
